FAERS Safety Report 8220492-X (Version None)
Quarter: 2012Q1

REPORT INFORMATION
  Report Type: 
  Country: None (occurrence: None)
  Receive Date: 20120320
  Receipt Date: 20120309
  Transmission Date: 20120608
  Serious: Yes (Hospitalization)
  Sender: FDA-Public Use
  Company Number: US-BAYER-2011-075321

PATIENT
  Age: 32 Year
  Sex: Female
  Weight: 113.38 kg

DRUGS (9)
  1. MULTI-VITAMIN [Concomitant]
     Dosage: UNK
     Route: 048
     Dates: start: 20090422
  2. PERCOCET [Concomitant]
     Dosage: UNK
     Route: 048
     Dates: start: 20090423
  3. IBUPROFEN [Concomitant]
  4. POTASSIUM [Concomitant]
     Dosage: UNK
     Dates: start: 20080601
  5. LEVAQUIN [Concomitant]
     Dosage: UNK
     Route: 048
     Dates: start: 20090423
  6. YAZ [Suspect]
     Indication: CONTRACEPTION
     Dosage: UNK
     Route: 048
     Dates: start: 20080601, end: 20100601
  7. CRANBERRY [Concomitant]
     Dosage: UNK
     Route: 048
     Dates: start: 20090422
  8. VICODIN [Concomitant]
  9. PAPAYA ENZYME [Concomitant]
     Dosage: UNK
     Route: 048
     Dates: start: 20090422

REACTIONS (4)
  - GALLBLADDER INJURY [None]
  - CHOLECYSTITIS CHRONIC [None]
  - INJURY [None]
  - PAIN [None]
